FAERS Safety Report 10501231 (Version 1)
Quarter: 2014Q4

REPORT INFORMATION
  Report Type: Spontaneous
  Country: US (occurrence: None)
  Receive Date: 20141006
  Receipt Date: 20141006
  Transmission Date: 20150528
  Serious: Yes (Other)
  Sender: FDA-Public Use
  Company Number: None

PATIENT
  Age: 66 Year
  Sex: Female
  Weight: 79.38 kg

DRUGS (9)
  1. PRAVASTATIN [Concomitant]
     Active Substance: PRAVASTATIN\PRAVASTATIN SODIUM
  2. ONE A DAY WOMEN^S MULTIVITAMINS [Concomitant]
  3. LOTRIGINE [Concomitant]
  4. FISH OIL [Concomitant]
     Active Substance: FISH OIL
  5. OMPERALZE [Concomitant]
  6. CITALOPRAM [Suspect]
     Active Substance: CITALOPRAM HYDROBROMIDE
     Indication: DEPRESSION
     Dosage: 20 MG, 1 PILL (OBLONG), 1 @ DAY  MORNING, MOUTH
     Route: 048
     Dates: start: 20140306, end: 20140811
  7. CALCIUM [Concomitant]
     Active Substance: CALCIUM
  8. CINNAMON CAPSULES [Concomitant]
  9. VITAMIN D [Concomitant]
     Active Substance: CHOLECALCIFEROL

REACTIONS (7)
  - Pharyngeal erythema [None]
  - Nasopharyngitis [None]
  - Product quality issue [None]
  - Throat irritation [None]
  - Burning sensation [None]
  - Pharyngeal oedema [None]
  - Anxiety [None]

NARRATIVE: CASE EVENT DATE: 20140608
